FAERS Safety Report 8272858 (Version 2)
Quarter: 2012Q4

REPORT INFORMATION
  Report Type: 
  Country: IE (occurrence: IE)
  Receive Date: 20111202
  Receipt Date: 20120926
  Transmission Date: 20130627
  Serious: Yes (Death)
  Sender: FDA-Public Use
  Company Number: PHHY2011IE103958

PATIENT
  Age: 19 Month
  Sex: Male

DRUGS (3)
  1. CARBAMAZEPINE [Suspect]
  2. CLONAZEPAM [Concomitant]
  3. BACLOFEN [Concomitant]

REACTIONS (2)
  - Respiratory failure [Fatal]
  - Drug ineffective [Unknown]
